FAERS Safety Report 6077057-8 (Version None)
Quarter: 2009Q1

REPORT INFORMATION
  Report Type: 
  Country: None (occurrence: None)
  Receive Date: 20090211
  Receipt Date: 20090204
  Transmission Date: 20090719
  Serious: Yes (Hospitalization)
  Sender: FDA-Public Use
  Company Number: 2009SP001727

PATIENT
  Age: 53 Year
  Sex: Female
  Weight: 82.5547 kg

DRUGS (5)
  1. PEG-INTRON [Suspect]
     Indication: HEPATITIS C
     Dosage: 135 MCG; SC
     Route: 058
     Dates: start: 20080827, end: 20090120
  2. PEG-INTRON [Suspect]
     Indication: HEPATITIS C
     Dosage: 135 MCG; SC
     Route: 058
     Dates: end: 20090129
  3. REBETOL [Suspect]
     Indication: HEPATITIS C
     Dosage: 1000 MG; PO
     Route: 048
     Dates: start: 20080827, end: 20090120
  4. REBETOL [Suspect]
     Indication: HEPATITIS C
     Dosage: 1000 MG; PO
     Route: 048
     Dates: end: 20090129
  5. INVESTIGATIONAL DRUG [Suspect]
     Indication: HEPATITIS C
     Dosage: 445.5 MG; IV
     Route: 042
     Dates: start: 20080827, end: 20090129

REACTIONS (19)
  - ARTHRALGIA [None]
  - ASPARTATE AMINOTRANSFERASE INCREASED [None]
  - ASTHENIA [None]
  - BLOOD OSMOLARITY DECREASED [None]
  - BLOOD UREA DECREASED [None]
  - CENTRAL NERVOUS SYSTEM NEOPLASM [None]
  - DEHYDRATION [None]
  - FALL [None]
  - HYPONATRAEMIA [None]
  - INAPPROPRIATE ANTIDIURETIC HORMONE SECRETION [None]
  - LUNG NEOPLASM [None]
  - ORTHOSTATIC HYPOTENSION [None]
  - POLYDIPSIA [None]
  - POLYURIA [None]
  - PORPHYRIA ACUTE [None]
  - PYREXIA [None]
  - RASH [None]
  - SYNCOPE [None]
  - URINE OSMOLARITY INCREASED [None]
